FAERS Safety Report 20199382 (Version 1)
Quarter: 2021Q4

REPORT INFORMATION
  Report Type: Spontaneous
  Country: US (occurrence: None)
  Receive Date: 20211217
  Receipt Date: 20211217
  Transmission Date: 20220303
  Serious: Yes (Hospitalization)
  Sender: FDA-Public Use
  Company Number: None

PATIENT
  Age: 69 Year
  Sex: Female
  Weight: 105.1 kg

DRUGS (13)
  1. CISPLATIN [Suspect]
     Active Substance: CISPLATIN
     Dates: end: 20191013
  2. ETOPOSIDE [Suspect]
     Active Substance: ETOPOSIDE
     Dates: end: 20191013
  3. ALLEGRA [Concomitant]
     Active Substance: FEXOFENADINE HYDROCHLORIDE
  4. FOSAPREPITANT [Concomitant]
     Active Substance: FOSAPREPITANT
  5. METHYLPREDNISOLONE [Concomitant]
     Active Substance: METHYLPREDNISOLONE
  6. METOPROLOL [Concomitant]
     Active Substance: METOPROLOL
  7. SODIUM CHLORIDE [Concomitant]
     Active Substance: SODIUM CHLORIDE
  8. PEPCID [Concomitant]
     Active Substance: FAMOTIDINE
  9. POTASSIUM CHLORIDE IN SODIUM CHLORIDE INJECTION [Concomitant]
  10. PROCARDIA [Concomitant]
     Active Substance: NIFEDIPINE
  11. PROCHLORPERAZINE [Concomitant]
     Active Substance: PROCHLORPERAZINE
  12. TRAMADOL [Concomitant]
     Active Substance: TRAMADOL
  13. ZOFRAN [Concomitant]
     Active Substance: ONDANSETRON HYDROCHLORIDE

REACTIONS (9)
  - Dyspnoea [None]
  - Gastrooesophageal reflux disease [None]
  - Chest pain [None]
  - Hypervolaemia [None]
  - Weight increased [None]
  - Sinus bradycardia [None]
  - Cardiac failure [None]
  - Dyspnoea exertional [None]
  - Orthopnoea [None]

NARRATIVE: CASE EVENT DATE: 20191013
